FAERS Safety Report 21858877 (Version 14)
Quarter: 2023Q4

REPORT INFORMATION
  Report Type: Report from Study
  Country: GB (occurrence: GB)
  Receive Date: 20230113
  Receipt Date: 20231101
  Transmission Date: 20240110
  Serious: Yes (Hospitalization)
  Sender: FDA-Public Use
  Company Number: GB-ABBVIE-4233890

PATIENT
  Age: 50 Year
  Sex: Female

DRUGS (4)
  1. CARBIDOPA\LEVODOPA [Suspect]
     Active Substance: CARBIDOPA\LEVODOPA
     Indication: Parkinson^s disease
     Dosage: MD:8.2MLS CR:3.8MLS ED:2.7MLS,?FIRST ADMIN DATE 2023
     Route: 050
     Dates: start: 2023
  2. CARBIDOPA\LEVODOPA [Suspect]
     Active Substance: CARBIDOPA\LEVODOPA
     Dosage: 20MGS/5MGS, 100ML CASSETTE?LAST ADMIN DATE 2023
     Route: 050
     Dates: end: 2023
  3. SINEMET [Concomitant]
     Active Substance: CARBIDOPA\LEVODOPA
     Indication: Product used for unknown indication
     Dosage: HALF, 25/100
  4. SINEMET [Concomitant]
     Active Substance: CARBIDOPA\LEVODOPA
     Indication: Product used for unknown indication
     Dosage: HALF, 25/100, FREQUENCY: AT 12.00 MIDNIGHT PM
     Route: 050

REACTIONS (40)
  - Immobile [Not Recovered/Not Resolved]
  - Device kink [Not Recovered/Not Resolved]
  - On and off phenomenon [Not Recovered/Not Resolved]
  - Hypophagia [Not Recovered/Not Resolved]
  - Medical device discomfort [Not Recovered/Not Resolved]
  - Stoma site hypergranulation [Recovering/Resolving]
  - Abdominal mass [Not Recovered/Not Resolved]
  - Device occlusion [Not Recovered/Not Resolved]
  - Weight decreased [Recovered/Resolved]
  - Gastrointestinal disorder [Not Recovered/Not Resolved]
  - Product physical consistency issue [Not Recovered/Not Resolved]
  - Stoma site pain [Recovering/Resolving]
  - Parkinson^s disease [Not Recovered/Not Resolved]
  - Muscle rigidity [Not Recovered/Not Resolved]
  - Constipation [Recovered/Resolved]
  - Abdominal discomfort [Not Recovered/Not Resolved]
  - Illness [Not Recovered/Not Resolved]
  - Speech disorder [Not Recovered/Not Resolved]
  - Device issue [Not Recovered/Not Resolved]
  - Anxiety [Unknown]
  - Abdominal discomfort [Recovering/Resolving]
  - Device issue [Not Recovered/Not Resolved]
  - Dystonia [Recovering/Resolving]
  - Device issue [Not Recovered/Not Resolved]
  - Mobility decreased [Not Recovered/Not Resolved]
  - Depressed mood [Unknown]
  - Musculoskeletal chest pain [Recovering/Resolving]
  - Device occlusion [Not Recovered/Not Resolved]
  - Therapeutic product effect decreased [Not Recovered/Not Resolved]
  - Device material issue [Unknown]
  - Device dislocation [Not Recovered/Not Resolved]
  - Frustration tolerance decreased [Unknown]
  - Device kink [Recovered/Resolved]
  - Abdominal distension [Recovering/Resolving]
  - Device leakage [Not Recovered/Not Resolved]
  - Constipation [Recovered/Resolved]
  - Stoma site infection [Recovered/Resolved]
  - Gastrointestinal infection [Recovering/Resolving]
  - Stoma site discharge [Recovering/Resolving]
  - Abdominal pain [Not Recovered/Not Resolved]

NARRATIVE: CASE EVENT DATE: 20220101
